FAERS Safety Report 4539405-7 (Version None)
Quarter: 2004Q4

REPORT INFORMATION
  Report Type: 
  Country: None (occurrence: None)
  Receive Date: 20041228
  Receipt Date: 20041217
  Transmission Date: 20050328
  Serious: Yes (Life-Threatening, Hospitalization)
  Sender: FDA-Public Use
  Company Number: CA-ROCHE-389629

PATIENT
  Age: 15 Year
  Sex: Female

DRUGS (1)
  1. ACCUTANE [Suspect]
     Indication: ACNE
     Route: 048
     Dates: start: 20040615, end: 20041216

REACTIONS (1)
  - SUICIDE ATTEMPT [None]
